FAERS Safety Report 14904089 (Version 2)
Quarter: 2018Q2

REPORT INFORMATION
  Report Type: Report from Study
  Country: None (occurrence: US)
  Receive Date: 20180516
  Receipt Date: 20180522
  Transmission Date: 20180711
  Serious: Yes (Hospitalization, Other)
  Sender: FDA-Public Use
  Company Number: US-ABBVIE-18K-163-2357950-00

PATIENT
  Age: 68 Year
  Sex: Male
  Weight: 86.26 kg

DRUGS (5)
  1. DUOPA [Suspect]
     Active Substance: CARBIDOPA\LEVODOPA
     Indication: PARKINSON^S DISEASE
     Route: 050
     Dates: start: 201606
  2. VITAMIN D [Concomitant]
     Active Substance: CHOLECALCIFEROL
     Indication: PRODUCT USED FOR UNKNOWN INDICATION
  3. WARFARIN [Concomitant]
     Active Substance: WARFARIN
     Indication: PRODUCT USED FOR UNKNOWN INDICATION
  4. ASPIRIN. [Concomitant]
     Active Substance: ASPIRIN
     Indication: PRODUCT USED FOR UNKNOWN INDICATION
  5. SOTALOL. [Concomitant]
     Active Substance: SOTALOL
     Indication: PRODUCT USED FOR UNKNOWN INDICATION

REACTIONS (6)
  - Eye swelling [Recovering/Resolving]
  - Fall [Unknown]
  - Dyspnoea [Recovering/Resolving]
  - Eye contusion [Recovering/Resolving]
  - Peripheral swelling [Recovering/Resolving]
  - Rib fracture [Recovering/Resolving]

NARRATIVE: CASE EVENT DATE: 20180506
